FAERS Safety Report 7051248-1 (Version None)
Quarter: 2010Q4

REPORT INFORMATION
  Report Type: 
  Country: None (occurrence: None)
  Receive Date: 20101019
  Receipt Date: 20101005
  Transmission Date: 20110411
  Serious: Yes (Other)
  Sender: FDA-Public Use
  Company Number: PHHY2010DE67485

PATIENT
  Age: 66 Year
  Sex: Female

DRUGS (9)
  1. DIOVAN [Suspect]
     Indication: HYPERTENSION
     Dosage: MAX 400 MG/D
     Dates: start: 20060101
  2. DIOVAN [Suspect]
     Dosage: 80-80-160 MG/D
  3. RASILEZ [Suspect]
     Indication: HYPERTENSION
     Dosage: 150 MG, BID
     Dates: start: 20100701
  4. RASILEZ [Suspect]
     Dosage: 150 MG, TID
     Dates: start: 20100101, end: 20100101
  5. RASILEZ [Suspect]
     Dosage: 150 MG, BID
     Dates: start: 20100927, end: 20100928
  6. RASILEZ [Suspect]
     Dosage: 150 MG, QD
     Dates: start: 20100929, end: 20101001
  7. RASILEZ [Suspect]
     Dosage: 75 MG, QD
     Dates: start: 20101002
  8. BISOPROLOL [Concomitant]
     Indication: HYPERTENSION
     Dosage: 10 MG/D
  9. NITRO-SPRAY [Concomitant]
     Dosage: IN CASE OF NEED

REACTIONS (4)
  - CATARACT [None]
  - DRY EYE [None]
  - DRY MOUTH [None]
  - PHOTOPHOBIA [None]
